FAERS Safety Report 17921563 (Version 1)
Quarter: 2020Q2

REPORT INFORMATION
  Report Type: Spontaneous
  Country: JP (occurrence: JP)
  Receive Date: 20200622
  Receipt Date: 20200622
  Transmission Date: 20200714
  Serious: Yes (Other)
  Sender: FDA-Public Use
  Company Number: JP-MACLEODS PHARMACEUTICALS US LTD-MAC2020026839

PATIENT

DRUGS (2)
  1. FEXOFENADINE [Concomitant]
     Active Substance: FEXOFENADINE HYDROCHLORIDE
     Indication: SEBORRHOEIC DERMATITIS
     Dosage: UNK
     Route: 048
  2. CLOBETASOL 0.05 % W/W [Suspect]
     Active Substance: CLOBETASOL
     Indication: SEBORRHOEIC DERMATITIS
     Dosage: UNK, STRONG CLASS CLOBETASOL PROPIONATE OINTMENT 0.05? LOTION
     Route: 061

REACTIONS (4)
  - Alopecia [Recovering/Resolving]
  - Staphylococcal impetigo [Recovering/Resolving]
  - Psoriasis [Recovering/Resolving]
  - Staphylococcal infection [Recovering/Resolving]
